FAERS Safety Report 9004342 (Version 1)
Quarter: 2013Q1

REPORT INFORMATION
  Report Type: Spontaneous
  Country: US (occurrence: US)
  Receive Date: 20130108
  Receipt Date: 20130108
  Transmission Date: 20140127
  Serious: Yes (Death)
  Sender: FDA-Public Use
  Company Number: US-ACTELION-A-US2013-77116

PATIENT
  Age: 51 Year
  Sex: Female

DRUGS (4)
  1. TRACLEER [Suspect]
     Indication: PULMONARY ARTERIAL HYPERTENSION
     Dosage: UNK
     Route: 048
     Dates: end: 20121205
  2. REMODULIN [Concomitant]
  3. COUMADIN [Concomitant]
  4. DIGITEK [Concomitant]

REACTIONS (1)
  - Death [Fatal]
